FAERS Safety Report 5865371-8 (Version None)
Quarter: 2008Q3

REPORT INFORMATION
  Report Type: 
  Country: None (occurrence: None)
  Receive Date: 20080829
  Receipt Date: 20080724
  Transmission Date: 20090109
  Serious: No
  Sender: FDA-Public Use
  Company Number: US-ABBOTT-08P-163-0465537-00

PATIENT
  Sex: Male
  Weight: 77.18 kg

DRUGS (4)
  1. SIMCOR [Suspect]
     Indication: DRUG USE FOR UNKNOWN INDICATION
  2. NOT REPORTED [Concomitant]
     Indication: HYPERTENSION
  3. NOT REPORTED [Concomitant]
     Indication: DRUG USE FOR UNKNOWN INDICATION
  4. NOT REPORTED [Concomitant]
     Indication: DIURETIC THERAPY

REACTIONS (2)
  - FEELING HOT [None]
  - PRURITUS [None]
